FAERS Safety Report 11401692 (Version 2)
Quarter: 2015Q4

REPORT INFORMATION
  Report Type: Spontaneous
  Country: CN (occurrence: CN)
  Receive Date: 20150821
  Receipt Date: 20151110
  Transmission Date: 20160304
  Serious: Yes (Hospitalization)
  Sender: FDA-Public Use
  Company Number: CN-PFIZER INC-2015266290

PATIENT
  Age: 59 Year
  Sex: Female

DRUGS (1)
  1. SUTENT [Suspect]
     Active Substance: SUNITINIB MALATE
     Indication: RENAL CELL CARCINOMA
     Dosage: UNK

REACTIONS (4)
  - Disease progression [Unknown]
  - Renal cell carcinoma [Unknown]
  - Pleural effusion [Unknown]
  - Blood creatinine increased [Unknown]
